FAERS Safety Report 14160195 (Version 2)
Quarter: 2018Q4

REPORT INFORMATION
  Report Type: Spontaneous
  Country: TH (occurrence: TH)
  Receive Date: 20171103
  Receipt Date: 20181109
  Transmission Date: 20190204
  Serious: Yes (Other)
  Sender: FDA-Public Use
  Company Number: TH-B.I. PHARMACEUTICALS,INC./RIDGEFIELD-2017-BI-058476

PATIENT
  Age: 68 Year
  Sex: Female
  Weight: 45 kg

DRUGS (4)
  1. GILOTRIF [Suspect]
     Active Substance: AFATINIB
     Indication: NERVE ROOT COMPRESSION
     Route: 065
  2. GILOTRIF [Suspect]
     Active Substance: AFATINIB
     Indication: NON-SMALL CELL LUNG CANCER STAGE IV
     Route: 065
     Dates: start: 20151214
  3. GILOTRIF [Suspect]
     Active Substance: AFATINIB
     Indication: BONE DISORDER
     Route: 065
  4. GILOTRIF [Suspect]
     Active Substance: AFATINIB
     Indication: LUNG DISORDER
     Route: 065

REACTIONS (7)
  - Paronychia [Recovering/Resolving]
  - Diarrhoea [Unknown]
  - Rash [Unknown]
  - Lymph node palpable [Recovered/Resolved]
  - Mucosal inflammation [Unknown]
  - Acne pustular [Unknown]
  - Pain [Unknown]
